FAERS Safety Report 8530251 (Version 2)
Quarter: 2013Q1

REPORT INFORMATION
  Report Type: Spontaneous
  Country: FR (occurrence: FR)
  Receive Date: 20120425
  Receipt Date: 20130329
  Transmission Date: 20140127
  Serious: Yes (Hospitalization, Other)
  Sender: FDA-Public Use
  Company Number: FR-ABBOTT-12P-056-0926874-00

PATIENT
  Age: 49 Year
  Sex: Male

DRUGS (7)
  1. HUMIRA 40 MG/ 0.8 ML PRE-FILLED SYRINGE [Suspect]
     Indication: PSORIATIC ARTHROPATHY
     Route: 058
     Dates: start: 200906, end: 20111018
  2. METHOTREXATE [Suspect]
     Indication: PSORIATIC ARTHROPATHY
     Dates: end: 201110
  3. METHOTREXATE [Suspect]
     Route: 048
     Dates: start: 20120405
  4. DAIVOBET [Concomitant]
     Indication: PSORIASIS
     Dosage: 50 MCG/0.5MG/G
     Route: 061
  5. SPECIAFOLDINE [Concomitant]
     Indication: PRODUCT USED FOR UNKNOWN INDICATION
     Route: 048
  6. PARACETAMOL [Concomitant]
     Indication: PRODUCT USED FOR UNKNOWN INDICATION
     Route: 048
  7. LEVOTHYROX [Concomitant]
     Indication: HYPOTHYROIDISM
     Route: 048
     Dates: start: 201007

REACTIONS (11)
  - Portal vein thrombosis [Not Recovered/Not Resolved]
  - Splenic vein thrombosis [Unknown]
  - Mesenteric vein thrombosis [Unknown]
  - Ileus [Unknown]
  - Abdominal pain [Unknown]
  - Abdominal discomfort [Unknown]
  - Abdominal distension [Unknown]
  - Psoriasis [Unknown]
  - Ultrasound liver abnormal [Unknown]
  - Megakaryocytes abnormal [Unknown]
  - Drug ineffective [Unknown]
